FAERS Safety Report 14092242 (Version 1)
Quarter: 2017Q4

REPORT INFORMATION
  Report Type: Spontaneous
  Country: US (occurrence: US)
  Receive Date: 20171014
  Receipt Date: 20171014
  Transmission Date: 20180321
  Serious: Yes (Other)
  Sender: FDA-Public Use
  Company Number: None

PATIENT
  Age: 72 Year
  Sex: Male
  Weight: 79.2 kg

DRUGS (20)
  1. SALMETEROL [Concomitant]
     Active Substance: SALMETEROL
  2. MULTIPLE VITAMIN [Concomitant]
     Active Substance: VITAMINS
  3. AFRIN [Concomitant]
     Active Substance: OXYMETAZOLINE
  4. MORPHINE SULFATE IR [Concomitant]
     Active Substance: MORPHINE SULFATE
  5. ATENOLOL. [Concomitant]
     Active Substance: ATENOLOL
  6. SIMVASTATIN. [Concomitant]
     Active Substance: SIMVASTATIN
  7. CLINDAMYCIN HCL [Concomitant]
     Active Substance: CLINDAMYCIN HYDROCHLORIDE
  8. TESTOSTERONE ENANTHNATE [Concomitant]
  9. BUPROPION HYDROCHLORIDE SR [Concomitant]
     Active Substance: BUPROPION HYDROCHLORIDE
  10. LEVOFLOXACIN. [Suspect]
     Active Substance: LEVOFLOXACIN
     Indication: PNEUMONIA
     Dosage: ?          QUANTITY:10 TABLET(S);?
     Route: 048
     Dates: start: 20171006, end: 20171008
  11. DOXEPIN [Concomitant]
     Active Substance: DOXEPIN
  12. BEANO [Concomitant]
     Active Substance: ASPERGILLUS NIGER .ALPHA.-GALACTOSIDASE
  13. MAXAIR [Concomitant]
     Active Substance: PIRBUTEROL ACETATE
  14. BAYER ASPIRIN LOW DOSE [Concomitant]
  15. FLUTCASONE PROPIONATE [Concomitant]
  16. ADVAIR DISKUS FLUTICASONE PROPIONATE [Concomitant]
  17. MELOXICAM. [Concomitant]
     Active Substance: MELOXICAM
  18. LEVOTHYROXINE. [Concomitant]
     Active Substance: LEVOTHYROXINE
  19. LISINOPRIL. [Concomitant]
     Active Substance: LISINOPRIL
  20. CYCLOBENZAPRINE. [Concomitant]
     Active Substance: CYCLOBENZAPRINE

REACTIONS (4)
  - Tendon injury [None]
  - Pain in extremity [None]
  - Tendon rupture [None]
  - Gait disturbance [None]

NARRATIVE: CASE EVENT DATE: 20171008
